FAERS Safety Report 7023483-X (Version None)
Quarter: 2010Q3

REPORT INFORMATION
  Report Type: 
  Country: None (occurrence: None)
  Receive Date: 20100929
  Receipt Date: 20100915
  Transmission Date: 20110219
  Serious: Yes (Hospitalization)
  Sender: FDA-Public Use
  Company Number: US-000079

PATIENT
  Sex: Female
  Weight: 68.2 kg

DRUGS (3)
  1. TETRAHYDROBIOPTERIN (100 MG, 100 MG) [Suspect]
     Indication: PHENYLKETONURIA
     Dosage: 1300 MG QD ORAL, 1300 MG QD ORAL
     Route: 048
     Dates: start: 20081005, end: 20091225
  2. TETRAHYDROBIOPTERIN (100 MG, 100 MG) [Suspect]
     Indication: PHENYLKETONURIA
     Dosage: 1300 MG QD ORAL, 1300 MG QD ORAL
     Route: 048
     Dates: start: 20100101
  3. EUGYNON [Concomitant]

REACTIONS (1)
  - APPENDICITIS [None]
